FAERS Safety Report 21804834 (Version 1)
Quarter: 2023Q1

REPORT INFORMATION
  Report Type: Spontaneous
  Country: MY (occurrence: MY)
  Receive Date: 20230102
  Receipt Date: 20230102
  Transmission Date: 20230418
  Serious: Yes (Other)
  Sender: FDA-Public Use
  Company Number: MY-BEH-2022153659

PATIENT
  Sex: Female
  Weight: 72 kg

DRUGS (1)
  1. HIZENTRA [Suspect]
     Active Substance: HUMAN IMMUNOGLOBULIN G
     Indication: Multifocal motor neuropathy
     Route: 058

REACTIONS (4)
  - Injection site infection [Recovering/Resolving]
  - Injection site abscess [Recovering/Resolving]
  - No adverse event [Unknown]
  - Off label use [Unknown]
